FAERS Safety Report 17904455 (Version 1)
Quarter: 2020Q2

REPORT INFORMATION
  Report Type: Spontaneous
  Country: US (occurrence: US)
  Receive Date: 20200616
  Receipt Date: 20200616
  Transmission Date: 20200714
  Serious: No
  Sender: FDA-Public Use
  Company Number: US-IBSA-2018-IBSA-TST01

PATIENT
  Age: 35 Year
  Sex: Female
  Weight: 63.56 kg

DRUGS (3)
  1. TIROSINT [Suspect]
     Active Substance: LEVOTHYROXINE SODIUM
     Dosage: ONE 25MCG AND ONE 13MCG CAPSULE DAILY
     Route: 048
     Dates: start: 2018, end: 20180315
  2. TIROSINT [Suspect]
     Active Substance: LEVOTHYROXINE SODIUM
     Indication: AUTOIMMUNE THYROIDITIS
     Dosage: 25MCG DAILY
     Route: 048
     Dates: start: 201802
  3. TIROSINT [Suspect]
     Active Substance: LEVOTHYROXINE SODIUM
     Indication: AUTOIMMUNE THYROIDITIS
     Dosage: ONE 25MCG AND ONE 13MCG CAPSULE DAILY
     Route: 048
     Dates: start: 2018, end: 20180315

REACTIONS (8)
  - Muscular weakness [Recovering/Resolving]
  - Feeding disorder [Recovering/Resolving]
  - Asthenia [Recovering/Resolving]
  - Pain [Recovering/Resolving]
  - Thyroid function test abnormal [Unknown]
  - Inappropriate schedule of product administration [Unknown]
  - Nausea [Recovering/Resolving]
  - Drug level below therapeutic [Unknown]

NARRATIVE: CASE EVENT DATE: 2018
